FAERS Safety Report 9550581 (Version 1)
Quarter: 2013Q3

REPORT INFORMATION
  Report Type: Spontaneous
  Country: US (occurrence: US)
  Receive Date: 20130924
  Receipt Date: 20130924
  Transmission Date: 20140515
  Serious: No
  Sender: FDA-Public Use
  Company Number: US-SANOFI-AVENTIS-2013SA036466

PATIENT
  Age: 60 Year
  Sex: Female

DRUGS (3)
  1. AUBAGIO [Suspect]
     Indication: MULTIPLE SCLEROSIS
     Route: 048
     Dates: start: 20130116
  2. NEURONTIN [Suspect]
     Indication: BURNING SENSATION
     Dosage: DOSAGE WAS INCREASED FROM 300 - 600MG A DAY.
     Route: 065
     Dates: start: 20130308
  3. NEURONTIN [Suspect]
     Indication: RESTLESS LEGS SYNDROME
     Dosage: DOSAGE WAS INCREASED FROM 300 - 600MG A DAY.
     Route: 065
     Dates: start: 20130308

REACTIONS (5)
  - Feeling abnormal [Unknown]
  - Headache [Unknown]
  - Restless legs syndrome [Unknown]
  - Burning sensation [Unknown]
  - Balance disorder [Unknown]
